FAERS Safety Report 9800283 (Version 1)
Quarter: 2014Q1

REPORT INFORMATION
  Report Type: Spontaneous
  Country: FR (occurrence: FR)
  Receive Date: 20140106
  Receipt Date: 20140106
  Transmission Date: 20141002
  Serious: Yes (Hospitalization)
  Sender: FDA-Public Use
  Company Number: FR-WATSON-2013-24484

PATIENT
  Age: 83 Year
  Sex: Male

DRUGS (18)
  1. BUDESONIDE [Suspect]
     Indication: PRODUCT USED FOR UNKNOWN INDICATION
     Dosage: UNK, UNKNOWN
     Route: 065
     Dates: start: 20130207
  2. VANCOMYCIN (UNKNOWN) [Suspect]
     Indication: INFECTION
     Dosage: UNK, UNKNOWN
     Route: 042
     Dates: start: 20130202, end: 20130203
  3. PIPERACILLINE/TAZOBACTAM [Suspect]
     Indication: BRONCHOPNEUMONIA
     Dosage: 1 DF, TID
     Route: 042
     Dates: start: 20130212, end: 20130219
  4. LEVOFLOXACINE [Suspect]
     Indication: BRONCHOPNEUMONIA
     Dosage: 1 DF, BID
     Route: 042
     Dates: start: 20130204, end: 20130219
  5. CEFTRIAXONE PANPHARMA [Suspect]
     Indication: BRONCHOPNEUMONIA
     Dosage: 1 DF, DAILY
     Route: 042
     Dates: start: 20130206, end: 20130212
  6. MONO TILDIEM [Suspect]
     Indication: PRODUCT USED FOR UNKNOWN INDICATION
     Dosage: 1 DF, DAILY
     Route: 048
     Dates: start: 20130127, end: 20130210
  7. DIGOXINE NATIVELLE [Suspect]
     Indication: PRODUCT USED FOR UNKNOWN INDICATION
     Dosage: UNK, UNKNOWN
     Route: 042
     Dates: start: 20130209, end: 20130211
  8. FUNGIZONE [Suspect]
     Indication: FUNGAL INFECTION
     Dosage: UNK, UNKNOWN
     Route: 002
     Dates: start: 20130206, end: 20130212
  9. AUGMENTIN [Suspect]
     Indication: INFECTION
     Dosage: UNK, UNKNOWN
     Route: 042
     Dates: start: 20130128, end: 20130212
  10. RISORDAN [Suspect]
     Indication: PRODUCT USED FOR UNKNOWN INDICATION
     Dosage: UNK
     Route: 042
     Dates: start: 20130207
  11. MIDAZOLAM [Suspect]
     Indication: PRODUCT USED FOR UNKNOWN INDICATION
     Dosage: UNK, UNKNOWN
     Route: 042
     Dates: start: 20130211, end: 20130214
  12. SUXAMETHONIUM [Suspect]
     Indication: ANAESTHESIA
     Dosage: UNK, UNKNOWN
     Route: 042
     Dates: start: 20130209, end: 20130209
  13. HYPNOMIDATE /00466801/ [Suspect]
     Indication: ANAESTHESIA
     Dosage: UNK, UNKNOWN
     Route: 042
     Dates: start: 20130209, end: 20130209
  14. TRANXENE [Suspect]
     Indication: ANXIETY
     Dosage: 1 DF, DAILY
     Route: 048
     Dates: start: 20130209
  15. LASILIX                            /00032601/ [Concomitant]
     Indication: PRODUCT USED FOR UNKNOWN INDICATION
     Dosage: UNK, UNKNOWN
     Route: 048
     Dates: start: 20130127, end: 20130210
  16. DIFFU-K [Concomitant]
     Indication: PRODUCT USED FOR UNKNOWN INDICATION
     Dosage: UNK, UNKNOWN
     Route: 048
     Dates: start: 20130202, end: 20130204
  17. NORADRENALINE                      /00127501/ [Concomitant]
     Indication: PRODUCT USED FOR UNKNOWN INDICATION
     Dosage: UNK, UNKNOWN
     Route: 042
     Dates: start: 20130211, end: 20130214
  18. FENTANYL [Concomitant]
     Indication: PRODUCT USED FOR UNKNOWN INDICATION
     Dosage: UNK, UNKNOWN
     Route: 042
     Dates: start: 20130209, end: 20130214

REACTIONS (1)
  - Thrombocytopenia [Recovered/Resolved]
